FAERS Safety Report 20721761 (Version 1)
Quarter: 2022Q2

REPORT INFORMATION
  Report Type: Spontaneous
  Country: US (occurrence: US)
  Receive Date: 20220418
  Receipt Date: 20220418
  Transmission Date: 20220721
  Serious: Yes (Other)
  Sender: FDA-Public Use
  Company Number: US-BRISTOL-MYERS SQUIBB COMPANY-2022-020954

PATIENT
  Age: 64 Year
  Sex: Female
  Weight: 79 kg

DRUGS (1)
  1. THALOMID [Suspect]
     Active Substance: THALIDOMIDE
     Indication: Chronic cutaneous lupus erythematosus
     Dosage: DAILY
     Route: 048
     Dates: start: 20220126

REACTIONS (2)
  - Seizure [Unknown]
  - Intentional product use issue [Unknown]
